FAERS Safety Report 9364905 (Version 3)
Quarter: 2013Q3

REPORT INFORMATION
  Report Type: Report from Study
  Country: FR (occurrence: FR)
  Receive Date: 20130624
  Receipt Date: 20130731
  Transmission Date: 20140515
  Serious: Yes (Hospitalization)
  Sender: FDA-Public Use
  Company Number: FR-GLAXOSMITHKLINE-B0901828A

PATIENT
  Age: 64 Year
  Sex: Female

DRUGS (6)
  1. LAPATINIB [Suspect]
     Indication: BREAST CANCER RECURRENT
     Route: 048
     Dates: end: 20130109
  2. BLINDED TRIAL MEDICATION [Suspect]
     Indication: BREAST CANCER RECURRENT
     Dosage: 40MG PER DAY
     Route: 048
     Dates: start: 20130411, end: 20130528
  3. INEXIUM [Concomitant]
  4. DAFALGAN [Concomitant]
  5. STAGID [Concomitant]
  6. METEOSPASMYL [Concomitant]

REACTIONS (1)
  - Neck pain [Recovered/Resolved]
